FAERS Safety Report 10975973 (Version 1)
Quarter: 2015Q2

REPORT INFORMATION
  Report Type: Spontaneous
  Country: FR (occurrence: FR)
  Receive Date: 20150401
  Receipt Date: 20150401
  Transmission Date: 20150821
  Serious: Yes (Other)
  Sender: FDA-Public Use
  Company Number: FR-MYLANLABS-2015M1010579

PATIENT

DRUGS (10)
  1. ALEMTUZUMAB [Concomitant]
     Active Substance: ALEMTUZUMAB
     Indication: BONE MARROW CONDITIONING REGIMEN
     Route: 065
  2. VALGANCICLOVIR [Suspect]
     Active Substance: VALGANCICLOVIR
     Indication: CYTOMEGALOVIRUS VIRAEMIA
     Route: 065
     Dates: start: 201001
  3. ARTESUNATE [Concomitant]
     Active Substance: ARTESUNATE
     Indication: CYTOMEGALOVIRUS VIRAEMIA
     Route: 065
     Dates: start: 200912
  4. GANCICLOVIR. [Suspect]
     Active Substance: GANCICLOVIR
     Indication: CYTOMEGALOVIRUS VIRAEMIA
     Dosage: INCREASED TO 3 MG/KG/6H AFTER NOV 2009
     Route: 042
     Dates: start: 200906
  5. FOSCARNET [Suspect]
     Active Substance: FOSCARNET
     Indication: CYTOMEGALOVIRUS VIRAEMIA
     Route: 042
     Dates: start: 200907
  6. FLUDARABINE [Concomitant]
     Active Substance: FLUDARABINE PHOSPHATE
     Indication: BONE MARROW CONDITIONING REGIMEN
     Route: 065
  7. MELPHALAN [Concomitant]
     Active Substance: MELPHALAN
     Indication: BONE MARROW CONDITIONING REGIMEN
     Route: 065
  8. CIDOFOVIR. [Suspect]
     Active Substance: CIDOFOVIR
     Indication: ADENOVIRUS INFECTION
     Route: 065
     Dates: start: 200909, end: 200912
  9. GANCICLOVIR. [Suspect]
     Active Substance: GANCICLOVIR
     Route: 042
     Dates: start: 200906
  10. CIDOFOVIR. [Suspect]
     Active Substance: CIDOFOVIR
     Indication: OFF LABEL USE

REACTIONS (4)
  - Pathogen resistance [Not Recovered/Not Resolved]
  - Viral mutation identified [Not Recovered/Not Resolved]
  - Renal tubular disorder [Unknown]
  - Neutropenia [Unknown]
